FAERS Safety Report 24183701 (Version 1)
Quarter: 2024Q3

REPORT INFORMATION
  Report Type: Spontaneous
  Country: US (occurrence: None)
  Receive Date: 20240806
  Receipt Date: 20240806
  Transmission Date: 20241017
  Serious: No
  Sender: Public
  Company Number: None

PATIENT
  Age: 48 Year
  Sex: Female
  Weight: 65.25 kg

DRUGS (8)
  1. EZETIMIBE [Suspect]
     Active Substance: EZETIMIBE
     Indication: Blood cholesterol increased
     Dates: start: 20240614, end: 20240801
  2. LIPITOR [Concomitant]
     Active Substance: ATORVASTATIN CALCIUM
  3. METOPROLOL [Concomitant]
     Active Substance: METOPROLOL
  4. SPIRONOLACTONE [Concomitant]
     Active Substance: SPIRONOLACTONE
  5. PLAVIX [Concomitant]
     Active Substance: CLOPIDOGREL BISULFATE
  6. Co-Enzyme Q-10 [Concomitant]
  7. PROBIOTICS NOS [Concomitant]
     Active Substance: PROBIOTICS NOS
  8. VITAMIN D [Concomitant]
     Active Substance: VITAMIN D NOS

REACTIONS (2)
  - Palpitations [None]
  - Ventricular extrasystoles [None]

NARRATIVE: CASE EVENT DATE: 20240614
